FAERS Safety Report 22044599 (Version 1)
Quarter: 2023Q1

REPORT INFORMATION
  Report Type: Spontaneous
  Country: US (occurrence: None)
  Receive Date: 20230227
  Receipt Date: 20230227
  Transmission Date: 20230418
  Serious: No
  Sender: FDA-Public Use
  Company Number: None

PATIENT
  Age: 51 Year
  Sex: Male
  Weight: 69.75 kg

DRUGS (1)
  1. PIMECROLIMUS [Suspect]
     Active Substance: PIMECROLIMUS
     Indication: Rash
     Dosage: OTHER QUANTITY : 30 G;?FREQUENCY : EVERY 12 HOURS;?
     Route: 061
     Dates: start: 20230226, end: 20230227

REACTIONS (1)
  - Eyelid irritation [None]

NARRATIVE: CASE EVENT DATE: 20230226
